FAERS Safety Report 21682374 (Version 2)
Quarter: 2022Q4

REPORT INFORMATION
  Report Type: Other
  Country: US (occurrence: None)
  Receive Date: 20221205
  Receipt Date: 20221223
  Transmission Date: 20230113
  Serious: No
  Sender: FDA-Public Use
  Company Number: US-ROCHE-3230746

PATIENT
  Age: 33 Year
  Sex: Female
  Weight: 63.560 kg

DRUGS (1)
  1. OCREVUS [Suspect]
     Active Substance: OCRELIZUMAB
     Indication: Relapsing-remitting multiple sclerosis
     Dosage: YES
     Route: 042
     Dates: start: 20221111

REACTIONS (1)
  - Herpes zoster [Not Recovered/Not Resolved]

NARRATIVE: CASE EVENT DATE: 20221128
